FAERS Safety Report 13390324 (Version 3)
Quarter: 2017Q2

REPORT INFORMATION
  Report Type: Spontaneous
  Country: JP (occurrence: JP)
  Receive Date: 20170331
  Receipt Date: 20170531
  Transmission Date: 20170830
  Serious: Yes (Hospitalization, Other)
  Sender: FDA-Public Use
  Company Number: JP-B.I. PHARMACEUTICALS,INC./RIDGEFIELD-2017-NB-001726

PATIENT
  Age: 62 Year
  Sex: Male
  Weight: 85.6 kg

DRUGS (3)
  1. EQUA [Concomitant]
     Active Substance: VILDAGLIPTIN
     Indication: PRODUCT USED FOR UNKNOWN INDICATION
     Route: 048
     Dates: start: 20150831, end: 20151025
  2. JARDIANCE [Suspect]
     Active Substance: EMPAGLIFLOZIN
     Indication: TYPE 2 DIABETES MELLITUS
     Route: 048
     Dates: start: 20160613, end: 20161121
  3. EQUA [Concomitant]
     Active Substance: VILDAGLIPTIN
     Route: 048
     Dates: start: 20151026

REACTIONS (2)
  - Haematocrit increased [Recovered/Resolved]
  - Acute myocardial infarction [Recovered/Resolved]

NARRATIVE: CASE EVENT DATE: 20160725
